FAERS Safety Report 10998887 (Version 1)
Quarter: 2015Q2

REPORT INFORMATION
  Report Type: Spontaneous
  Country: US (occurrence: US)
  Receive Date: 20150408
  Receipt Date: 20150408
  Transmission Date: 20150821
  Serious: No
  Sender: FDA-Public Use
  Company Number: US-SA-2014SA055376

PATIENT
  Age: 77 Year
  Sex: Female
  Weight: 86 kg

DRUGS (3)
  1. ALLEGRA [Suspect]
     Active Substance: FEXOFENADINE HYDROCHLORIDE
     Indication: NASOPHARYNGITIS
     Dosage: PRODUCT START DATE- 1 WEEK AGO?END DATE- 1 WEEK
     Route: 048
  2. CANDESARTAN CILEXETIL. [Concomitant]
     Active Substance: CANDESARTAN CILEXETIL
     Indication: HYPERTENSION
     Dosage: FEW YEARS AGO
     Route: 065
  3. ALLEGRA-D [Concomitant]
     Active Substance: FEXOFENADINE\PSEUDOEPHEDRINE
     Indication: MULTIPLE ALLERGIES
     Route: 065
     Dates: start: 20140424, end: 20140425

REACTIONS (2)
  - Nasopharyngitis [Recovered/Resolved]
  - Drug ineffective [Unknown]
